FAERS Safety Report 8359793-3 (Version None)
Quarter: 2012Q2

REPORT INFORMATION
  Report Type: 
  Country: None (occurrence: None)
  Receive Date: 20120515
  Receipt Date: 20120507
  Transmission Date: 20120825
  Serious: Yes (Other)
  Sender: FDA-Public Use
  Company Number: PHHY2012DE023467

PATIENT
  Age: 69 Year
  Sex: Male

DRUGS (4)
  1. LOCHOLEST [Suspect]
     Dosage: UNK
     Route: 048
  2. TAMSULOSIN HCL [Concomitant]
  3. TRAMADOL HYDROCHLORIDE [Concomitant]
  4. IBUPROFEN [Concomitant]

REACTIONS (2)
  - RENAL CELL CARCINOMA [None]
  - NIGHT SWEATS [None]
